FAERS Safety Report 13181121 (Version 1)
Quarter: 2017Q1

REPORT INFORMATION
  Report Type: Spontaneous
  Country: US (occurrence: US)
  Receive Date: 20170202
  Receipt Date: 20170202
  Transmission Date: 20170428
  Serious: No
  Sender: FDA-Public Use
  Company Number: US-SMITH AND NEPHEW, INC-2016SMT00654

PATIENT
  Sex: Female
  Weight: 72.56 kg

DRUGS (3)
  1. ^MANY OTHER MEDICATION(S)^ [Concomitant]
  2. REGRANEX [Suspect]
     Active Substance: BECAPLERMIN
     Indication: ULCER
     Dosage: UNK UNK, 1X/DAY
     Route: 061
     Dates: start: 201606, end: 20160728
  3. APIDRA [Concomitant]
     Active Substance: INSULIN GLULISINE

REACTIONS (2)
  - Drug ineffective [Unknown]
  - Wound complication [Unknown]

NARRATIVE: CASE EVENT DATE: 2016
